FAERS Safety Report 9295286 (Version 2)
Quarter: 2013Q3

REPORT INFORMATION
  Report Type: Spontaneous
  Country: FR (occurrence: FR)
  Receive Date: 20130517
  Receipt Date: 20130826
  Transmission Date: 20140515
  Serious: Yes (Death)
  Sender: FDA-Public Use
  Company Number: FR-MILLENNIUM PHARMACEUTICALS, INC.-2013-03706

PATIENT
  Sex: 0

DRUGS (6)
  1. VELCADE [Suspect]
     Indication: PLASMA CELL MYELOMA
     Dosage: UNK
     Route: 065
  2. DEXAMETHASONE [Suspect]
     Indication: PLASMA CELL MYELOMA
     Dosage: 40 MG, CYCLIC
     Route: 048
  3. CISPLATIN [Suspect]
     Indication: PLASMA CELL MYELOMA
     Dosage: 10 MG/M2, CYCLIC
     Route: 042
  4. DOXORUBICIN [Suspect]
     Indication: PLASMA CELL MYELOMA
     Dosage: 10 MG/M2, CYCLIC
     Route: 042
  5. CYCLOPHOSPHAMIDE [Suspect]
     Indication: PLASMA CELL MYELOMA
     Dosage: 400 MG/M2, CYCLIC
     Route: 042
  6. ETOPOSIDE [Suspect]
     Indication: PLASMA CELL MYELOMA
     Dosage: 40 MG/M2, CYCLIC
     Route: 042

REACTIONS (1)
  - Death [Fatal]
